FAERS Safety Report 20762385 (Version 1)
Quarter: 2022Q2

REPORT INFORMATION
  Report Type: Spontaneous
  Country: US (occurrence: None)
  Receive Date: 20220427
  Receipt Date: 20220427
  Transmission Date: 20220721
  Serious: Yes (Hospitalization)
  Sender: FDA-Public Use
  Company Number: None

PATIENT
  Sex: Female

DRUGS (1)
  1. CAPECITABINE [Suspect]
     Active Substance: CAPECITABINE
     Indication: Breast cancer
     Dosage: FREQUENCY : TWICE A DAY;?
     Route: 048
     Dates: start: 20220224, end: 20220310

REACTIONS (12)
  - Abdominal pain upper [None]
  - Dehydration [None]
  - Vomiting [None]
  - Chills [None]
  - Diarrhoea [None]
  - Depressed level of consciousness [None]
  - Pulmonary thrombosis [None]
  - Intracardiac thrombus [None]
  - Thrombosis [None]
  - Skin discolouration [None]
  - Stomatitis [None]
  - Oral candidiasis [None]
